FAERS Safety Report 15950223 (Version 1)
Quarter: 2019Q1

REPORT INFORMATION
  Report Type: Spontaneous
  Country: KR (occurrence: KR)
  Receive Date: 20190211
  Receipt Date: 20190211
  Transmission Date: 20190417
  Serious: Yes (Other)
  Sender: FDA-Public Use
  Company Number: KR-MYLANLABS-2019M1010008

PATIENT
  Age: 13 Year
  Sex: Male

DRUGS (1)
  1. LIDOCAINE. [Suspect]
     Active Substance: LIDOCAINE
     Indication: SKIN PAPILLOMA
     Route: 065
     Dates: start: 201205

REACTIONS (2)
  - Finger deformity [Recovering/Resolving]
  - Necrosis [Recovering/Resolving]
